FAERS Safety Report 19694792 (Version 1)
Quarter: 2021Q3

REPORT INFORMATION
  Report Type: Spontaneous
  Country: DE (occurrence: DE)
  Receive Date: 20210813
  Receipt Date: 20210813
  Transmission Date: 20211014
  Serious: Yes (Hospitalization, Other)
  Sender: FDA-Public Use
  Company Number: DE-TEVA-2021-DE-1940766

PATIENT
  Age: 66 Year
  Sex: Male

DRUGS (11)
  1. METOPROLOL. [Concomitant]
     Active Substance: METOPROLOL
     Dosage: 47.5 MILLIGRAM DAILY; 1?0?0?0
  2. CALCIUM/COLECALCIFEROL [Concomitant]
     Active Substance: CALCIUM\CHOLECALCIFEROL
  3. RAMIPRIL. [Concomitant]
     Active Substance: RAMIPRIL
     Dosage: .5 DOSAGE FORMS DAILY; 2.5 MG, 0.5?0?0?0
  4. PHENPROCOUMON [Concomitant]
     Active Substance: PHENPROCOUMON
     Dosage: 3 MG, ACCORDING TO QUICK,
  5. ACICLOVIR [Concomitant]
     Active Substance: ACYCLOVIR
  6. TORASEMID [Suspect]
     Active Substance: TORSEMIDE
     Dosage: 5 MILLIGRAM DAILY; 1?0?0?0
  7. CARFILZOMIB [Suspect]
     Active Substance: CARFILZOMIB
     Dosage: ACCORDING TO THE SCHEME
  8. BICALUTAMID [Concomitant]
     Active Substance: BICALUTAMIDE
     Dosage: 50 MILLIGRAM DAILY; 1?0?0?0
  9. SPIRONOLACTON [Suspect]
     Active Substance: SPIRONOLACTONE
     Dosage: .25 DOSAGE FORMS DAILY; 50 MG, 0.25?0?0?0
  10. DEXAMETHASON [Concomitant]
     Active Substance: DEXAMETHASONE
  11. XGEVA [Concomitant]
     Active Substance: DENOSUMAB
     Dosage: EVERY 4 WEEKS

REACTIONS (3)
  - Renal impairment [Recovering/Resolving]
  - Acute kidney injury [Recovering/Resolving]
  - Blood creatinine increased [Recovering/Resolving]

NARRATIVE: CASE EVENT DATE: 202105
